FAERS Safety Report 9054338 (Version 1)
Quarter: 2013Q1

REPORT INFORMATION
  Report Type: Spontaneous
  Country: US (occurrence: US)
  Receive Date: 20130208
  Receipt Date: 20130208
  Transmission Date: 20140127
  Serious: Yes (Death, Other)
  Sender: FDA-Public Use
  Company Number: CHPA2013US002524

PATIENT
  Age: 60 Year
  Sex: Male

DRUGS (10)
  1. DIPHENHYDRAMINE [Suspect]
     Dosage: UNK, UNK
     Route: 048
  2. ACETAMINOPHEN\DIPHENHYDRAMINE CITRATE [Suspect]
     Dosage: UNK, UNK
     Route: 048
  3. NORTRIPTYLINE [Suspect]
     Dosage: UNK, UNK
     Route: 048
  4. FEXOFENADINE [Suspect]
     Dosage: UNK, UNK
     Route: 048
  5. SALICYLATES [Suspect]
     Dosage: UNK, UNK
     Route: 048
  6. ATORVASTATIN [Suspect]
     Dosage: UNK, UNK
     Route: 048
  7. CLOPIDOGREL [Suspect]
     Dosage: UNK, UNK
     Route: 048
  8. METOPROLOL [Suspect]
     Dosage: UNK, UNK
     Route: 048
  9. AMLODIPINE AND OLMESARTAN MEDOXOMIL [Suspect]
     Dosage: UNK, UNK
     Route: 048
  10. DOXYLAMINE [Suspect]
     Dosage: UNK, UNK
     Route: 048

REACTIONS (2)
  - Completed suicide [Fatal]
  - Cardio-respiratory arrest [Unknown]
